FAERS Safety Report 21452822 (Version 1)
Quarter: 2022Q4

REPORT INFORMATION
  Report Type: Other
  Country: US (occurrence: None)
  Receive Date: 20221013
  Receipt Date: 20221013
  Transmission Date: 20230113
  Serious: Yes (Other)
  Sender: FDA-Public Use
  Company Number: US-ROCHE-2688650

PATIENT
  Age: 58 Year
  Sex: Female

DRUGS (18)
  1. ACTEMRA [Suspect]
     Active Substance: TOCILIZUMAB
     Indication: Systemic scleroderma
     Dosage: INJECT 162 MG INTO THE SKIN EVERY OTHER WEEK SUBCUTANEOUS
     Route: 058
     Dates: start: 20200715
  2. ACTEMRA [Suspect]
     Active Substance: TOCILIZUMAB
  3. ACTEMRA [Suspect]
     Active Substance: TOCILIZUMAB
     Indication: Pulmonary fibrosis
     Dosage: INJECT 162MG SUBCUTANEOUSLY EVERY 7 DAY(S)
     Route: 058
  4. ACTEMRA [Suspect]
     Active Substance: TOCILIZUMAB
  5. NORVASC [Concomitant]
     Active Substance: AMLODIPINE BESYLATE
     Dosage: TAKE 1 TABLET BY MOUTH DAILY
     Route: 048
     Dates: start: 20191030
  6. CUPRIMINE [Concomitant]
     Active Substance: PENICILLAMINE
     Dosage: TAKE 1 CAPSULE BY MOUTH DAILY FOR 6 WEEKS THEN 2 CAPSULES DAILY
     Route: 048
  7. PEPCID [Concomitant]
     Active Substance: FAMOTIDINE
     Dosage: TAKE 1 TABLET A FEW HOURS BEFORE BEDTIME
     Route: 048
     Dates: start: 20200714
  8. PROZAC [Concomitant]
     Active Substance: FLUOXETINE HYDROCHLORIDE
     Dosage: TAKE 1 CAPSULE BY MOUTH EVERY MORNING
     Route: 048
     Dates: start: 20190708
  9. PLAQUENIL [Concomitant]
     Active Substance: HYDROXYCHLOROQUINE SULFATE
     Dosage: TAKE 1.5 TABLETS BY MOUTH DAILY ORAL
     Route: 048
     Dates: start: 20200616
  10. OFEV [Concomitant]
     Active Substance: NINTEDANIB
     Dosage: TAKE 100 MG BY MOUTH 2 TIMES A DAY
     Route: 048
     Dates: start: 20200115
  11. PRILOSEC [Concomitant]
     Active Substance: OMEPRAZOLE MAGNESIUM
     Dosage: TAKE 1 CAPSULE BY MOUTH DAILY BEFORE A MEAL
     Route: 048
     Dates: start: 20200813
  12. REVATIO [Concomitant]
     Active Substance: SILDENAFIL CITRATE
     Dosage: ONE TAB PO BID
     Route: 048
     Dates: start: 20200526
  13. DIOVAN [Concomitant]
     Active Substance: VALSARTAN
     Dosage: TAKE 1 TABLET BY MOUTH ONCE DAILY
     Route: 048
     Dates: start: 20200504
  14. VENTOLIN HFA [Concomitant]
     Active Substance: ALBUTEROL SULFATE
     Indication: Wheezing
     Dosage: INHALE TWO PUFFS BY MOUTH EVERY 4 HOURS AS NEEDED
     Dates: start: 20180917
  15. REGLAN [Concomitant]
     Active Substance: METOCLOPRAMIDE HYDROCHLORIDE
     Indication: Abdominal distension
     Route: 048
  16. REGLAN [Concomitant]
     Active Substance: METOCLOPRAMIDE HYDROCHLORIDE
     Indication: Nausea
  17. ZOFRAN [Concomitant]
     Active Substance: ONDANSETRON HYDROCHLORIDE
     Indication: Nausea
     Route: 048
  18. ZOFRAN [Concomitant]
     Active Substance: ONDANSETRON HYDROCHLORIDE
     Indication: Vomiting

REACTIONS (3)
  - Osteoporosis [Unknown]
  - Off label use [Unknown]
  - Thrombosis [Unknown]
